FAERS Safety Report 9306954 (Version 1)
Quarter: 2013Q2

REPORT INFORMATION
  Report Type: Spontaneous
  Country: US (occurrence: US)
  Receive Date: 20130523
  Receipt Date: 20130523
  Transmission Date: 20140414
  Serious: No
  Sender: FDA-Public Use
  Company Number: US-AMGEN-USASP2013018378

PATIENT
  Age: 65 Year
  Sex: Male
  Weight: 67 kg

DRUGS (19)
  1. EPOGEN [Suspect]
     Indication: RENAL FAILURE CHRONIC
     Dosage: 10000 UNIT, 5 TIMES/WK
     Route: 058
     Dates: start: 20111003, end: 20130307
  2. ARANESP [Suspect]
     Dosage: 25 MUG, MONTHLY
     Route: 058
     Dates: start: 20130319
  3. OMONTYS [Concomitant]
     Dosage: UNK
  4. HEPARIN [Concomitant]
     Dosage: 1000 UNIT, UNK
     Route: 042
     Dates: start: 20130102
  5. SODIUM CHLORIDE [Concomitant]
     Dosage: 0.9 %, 1000 ML, 14 COUNT
     Route: 050
     Dates: start: 20130102
  6. DIALYSATE [Concomitant]
     Dosage: 2 COUNT PRN/DIALYSIS
     Route: 050
     Dates: start: 20130102
  7. NORVASC [Concomitant]
     Dosage: 5 MG, QD
     Route: 048
     Dates: start: 20130314
  8. RENVELA [Concomitant]
     Dosage: 3 WITH EACH MEAL
     Route: 048
     Dates: start: 20120918
  9. SODIUM BICARBONATE [Concomitant]
     Dosage: 650 MG, QD
     Route: 048
     Dates: start: 20120918
  10. CELEXA                             /00582602/ [Concomitant]
     Dosage: 10 MG, QD
     Route: 048
     Dates: start: 20120723
  11. GENTAMICIN [Concomitant]
     Dosage: 1 APPLICATION
     Route: 061
     Dates: start: 20120425
  12. OMEPRAZOLE [Concomitant]
     Dosage: 20 MG, QD
     Route: 048
     Dates: start: 20120424
  13. MULTIVITAMINS, PLAIN [Concomitant]
     Dosage: 1 CAPSULE, QD
     Route: 048
     Dates: start: 20120314
  14. ERGOCALCIFEROL [Concomitant]
     Dosage: 1 CAPSULE MONTHLY
     Dates: start: 20120309
  15. BOOST [Concomitant]
     Dosage: 237 ML, BID
     Route: 048
     Dates: start: 20120309
  16. FERAHEME [Concomitant]
     Dosage: 510 MG, AS NECESSARY
     Route: 042
     Dates: start: 20120525
  17. ENGERIX-B [Concomitant]
     Dosage: 40 MUG, UNK
     Route: 030
     Dates: start: 20120309
  18. ALLOPURINOL [Concomitant]
     Dosage: 150 MG, QD
     Route: 048
     Dates: start: 20120229
  19. VITAMIN B12                        /00056201/ [Concomitant]
     Dosage: 1000 MUG, QD
     Dates: start: 20120229

REACTIONS (2)
  - Confusional state [Recovered/Resolved]
  - Haemoglobin decreased [Unknown]
